FAERS Safety Report 6860839-X (Version None)
Quarter: 2010Q3

REPORT INFORMATION
  Report Type: 
  Country: None (occurrence: None)
  Receive Date: 20100719
  Receipt Date: 20100719
  Transmission Date: 20110219
  Serious: Yes (Life-Threatening, Hospitalization, Other)
  Sender: FDA-Public Use
  Company Number: None

PATIENT
  Age: 51 Year
  Sex: Female
  Weight: 83.9154 kg

DRUGS (2)
  1. AMOXICILLIN [Suspect]
     Indication: HEADACHE
     Dates: start: 20020120, end: 20020127
  2. AMOXICILLIN [Suspect]
     Indication: SINUSITIS
     Dates: start: 20020120, end: 20020127

REACTIONS (5)
  - ARTHRALGIA [None]
  - PAIN IN EXTREMITY [None]
  - STEVENS-JOHNSON SYNDROME [None]
  - TOXIC EPIDERMAL NECROLYSIS [None]
  - UNEVALUABLE EVENT [None]
